FAERS Safety Report 15664710 (Version 1)
Quarter: 2018Q4

REPORT INFORMATION
  Report Type: Spontaneous
  Country: US (occurrence: US)
  Receive Date: 20181128
  Receipt Date: 20181128
  Transmission Date: 20190205
  Serious: Yes (Hospitalization, Other)
  Sender: FDA-Public Use
  Company Number: US-ACCORD-093914

PATIENT
  Age: 21 Year
  Sex: Male

DRUGS (1)
  1. AMITRIPTYLINE [Suspect]
     Active Substance: AMITRIPTYLINE
     Dosage: 41 AMITRIPTYLINE 50 MG TABLETS

REACTIONS (5)
  - Intentional overdose [Unknown]
  - Myocarditis [Recovering/Resolving]
  - Suicide attempt [Unknown]
  - Depressed level of consciousness [Unknown]
  - Lactic acidosis [Unknown]
